FAERS Safety Report 12875443 (Version 1)
Quarter: 2016Q4

REPORT INFORMATION
  Report Type: Spontaneous
  Country: FI (occurrence: FI)
  Receive Date: 20161024
  Receipt Date: 20161024
  Transmission Date: 20170207
  Serious: Yes (Life-Threatening, Other)
  Sender: FDA-Public Use
  Company Number: FI-PFIZER INC-2016422079

PATIENT
  Age: 58 Year
  Sex: Male

DRUGS (3)
  1. EMEND [Concomitant]
     Active Substance: APREPITANT
     Indication: VOMITING
     Dosage: 125 MG, UNK
     Route: 048
     Dates: start: 20160811
  2. OXALIPLATIN HOSPIRA [Suspect]
     Active Substance: OXALIPLATIN
     Dosage: 250 MG, UNK
     Route: 042
     Dates: start: 20160811, end: 20160811
  3. EPIRUBICIN MEDAC [Concomitant]
     Active Substance: EPIRUBICIN HYDROCHLORIDE
     Dosage: 100 MG, UNK
     Route: 042

REACTIONS (5)
  - Anaphylactic shock [Recovered/Resolved]
  - Musculoskeletal stiffness [Recovered/Resolved]
  - Tremor [Recovered/Resolved]
  - Speech disorder [Recovered/Resolved]
  - Stertor [Recovered/Resolved]

NARRATIVE: CASE EVENT DATE: 20160811
